FAERS Safety Report 8765669 (Version 3)
Quarter: 2012Q4

REPORT INFORMATION
  Report Type: 
  Country: JP (occurrence: JP)
  Receive Date: 20120904
  Receipt Date: 20120912
  Transmission Date: 20130627
  Serious: Yes (Hospitalization, Other)
  Sender: FDA-Public Use
  Company Number: PHHY2012JP046773

PATIENT
  Age: 74 Year
  Sex: Male

DRUGS (10)
  1. RIVASTIGMINE [Suspect]
     Indication: DEMENTIA ALZHEIMER^S TYPE
     Dosage: 4.5 mg, daily
     Dates: start: 20120412, end: 20120418
  2. RIVASTIGMINE [Suspect]
     Dosage: 9 mg, daily
     Dates: start: 20120419, end: 20120523
  3. MAGMITT [Suspect]
     Indication: CONSTIPATION
     Dosage: 660 mg, daily
     Route: 048
     Dates: start: 20120517, end: 20120522
  4. AMLODIN OD [Concomitant]
     Dates: start: 20120412
  5. GASTER [Concomitant]
     Dates: start: 20120412, end: 20120523
  6. HARNAL [Concomitant]
     Dates: start: 20120419
  7. UBRETID [Concomitant]
     Dates: start: 20120419
  8. LIPITOR [Concomitant]
     Dates: start: 20120503, end: 20120523
  9. GLYCERIN [Concomitant]
     Dates: start: 20120505, end: 20120505
  10. GLYCERIN [Concomitant]
     Dates: start: 20120517, end: 20120517

REACTIONS (3)
  - Anorectal disorder [Recovered/Resolved]
  - Diarrhoea [Recovered/Resolved]
  - Haemoglobin decreased [Recovered/Resolved]
